FAERS Safety Report 18547744 (Version 52)
Quarter: 2024Q3

REPORT INFORMATION
  Report Type: Report from Study
  Country: US (occurrence: US)
  Receive Date: 20201125
  Receipt Date: 20240823
  Transmission Date: 20241017
  Serious: Yes (Hospitalization, Disabling, Other)
  Sender: TAKEDA
  Company Number: US-TAKEDA-2020TUS049646

PATIENT
  Sex: Male
  Weight: 81 kg

DRUGS (23)
  1. HUMAN IMMUNOGLOBULIN G\HYALURONIDASE RECOMBINANT HUMAN [Suspect]
     Active Substance: HUMAN IMMUNOGLOBULIN G\HYALURONIDASE (HUMAN RECOMBINANT)
     Indication: Hypogammaglobulinaemia
     Dosage: 35 GRAM, Q4WEEKS
     Route: 058
     Dates: start: 20140517
  2. HUMAN IMMUNOGLOBULIN G\HYALURONIDASE RECOMBINANT HUMAN [Suspect]
     Active Substance: HUMAN IMMUNOGLOBULIN G\HYALURONIDASE (HUMAN RECOMBINANT)
     Indication: Immunodeficiency common variable
     Dosage: 35 GRAM, Q4WEEKS
     Route: 058
     Dates: start: 20201013
  3. COVID-19 VACCINE NOS [Suspect]
     Active Substance: COVID-19 VACCINE
     Indication: COVID-19 immunisation
     Dosage: UNK
     Route: 065
  4. ZOLOFT [Suspect]
     Active Substance: SERTRALINE HYDROCHLORIDE
     Indication: Product used for unknown indication
     Dosage: UNK
     Route: 065
  5. EPINEPHRINE [Concomitant]
     Active Substance: EPINEPHRINE
     Dosage: UNK
     Route: 065
  6. ACETAMINOPHEN [Concomitant]
     Active Substance: ACETAMINOPHEN
     Dosage: UNK
     Route: 065
  7. SODIUM CHLORIDE [Concomitant]
     Active Substance: SODIUM CHLORIDE
     Dosage: UNK
     Route: 065
  8. FLUTICASONE PROPIONATE [Concomitant]
     Active Substance: FLUTICASONE PROPIONATE
     Dosage: UNK
     Route: 065
  9. CLONIDINE HYDROCHLORIDE [Concomitant]
     Active Substance: CLONIDINE HYDROCHLORIDE
     Dosage: UNK
     Route: 065
  10. LIDOCAINE [Concomitant]
     Active Substance: LIDOCAINE
     Dosage: UNK
     Route: 065
  11. SEROQUEL [Concomitant]
     Active Substance: QUETIAPINE FUMARATE
     Dosage: UNK
     Route: 065
  12. METOPROLOL TARTRATE [Concomitant]
     Active Substance: METOPROLOL TARTRATE
     Dosage: UNK
     Route: 065
  13. BENADRYL [Concomitant]
     Active Substance: DIPHENHYDRAMINE HYDROCHLORIDE
     Dosage: UNK
     Route: 065
  14. VITAMINS [Concomitant]
     Active Substance: VITAMINS
     Dosage: UNK
     Route: 065
  15. DIPHENHYDRAMINE HYDROCHLORIDE [Concomitant]
     Active Substance: DIPHENHYDRAMINE HYDROCHLORIDE
     Dosage: UNK
     Route: 065
  16. IBUPROFEN [Concomitant]
     Active Substance: IBUPROFEN
     Dosage: UNK
     Route: 065
  17. HYDRALAZINE HCL [Concomitant]
     Active Substance: HYDRALAZINE HYDROCHLORIDE
     Dosage: UNK
     Route: 065
  18. PSEUDOEPHEDRINE [Concomitant]
     Active Substance: PSEUDOEPHEDRINE
     Dosage: UNK
     Route: 065
  19. AMLODIPINE BESYLATE [Concomitant]
     Active Substance: AMLODIPINE BESYLATE
     Dosage: UNK
     Route: 065
  20. KLONOPIN [Concomitant]
     Active Substance: CLONAZEPAM
     Dosage: UNK
     Route: 065
  21. PRILOSEC [Concomitant]
     Active Substance: OMEPRAZOLE MAGNESIUM
     Dosage: UNK
     Route: 065
  22. FLONASE [Concomitant]
     Active Substance: FLUTICASONE PROPIONATE
     Dosage: UNK
     Route: 065
  23. HYDRALAZINE [Concomitant]
     Active Substance: HYDRALAZINE HYDROCHLORIDE
     Dosage: UNK
     Route: 065

REACTIONS (84)
  - Disability [Unknown]
  - Suicidal ideation [Unknown]
  - Brain injury [Unknown]
  - Autoimmune disorder [Unknown]
  - Neoplasm malignant [Unknown]
  - Oesophageal carcinoma [Unknown]
  - Pain [Unknown]
  - Dyspnoea [Unknown]
  - Vomiting [Unknown]
  - Ear pain [Unknown]
  - Superior semicircular canal dehiscence [Unknown]
  - Memory impairment [Unknown]
  - Hyperacusis [Unknown]
  - Cold-stimulus headache [Unknown]
  - Somnolence [Unknown]
  - Ear disorder [Unknown]
  - Hepatic enzyme increased [Unknown]
  - Sinusitis [Recovered/Resolved]
  - Multiple allergies [Unknown]
  - Disturbance in attention [Unknown]
  - Ear discomfort [Unknown]
  - Seasonal allergy [Unknown]
  - Back disorder [Unknown]
  - Brain fog [Unknown]
  - Illness [Unknown]
  - Speech disorder [Unknown]
  - Depression [Unknown]
  - Sleep disorder [Unknown]
  - Sinus congestion [Unknown]
  - Supraventricular tachycardia [Unknown]
  - Perforation [Unknown]
  - Loss of personal independence in daily activities [Unknown]
  - Misophonia [Unknown]
  - Ear infection [Unknown]
  - General physical health deterioration [Unknown]
  - Illness anxiety disorder [Unknown]
  - Head discomfort [Unknown]
  - Movement disorder [Unknown]
  - Inner ear disorder [Unknown]
  - Insurance issue [Unknown]
  - Heart rate increased [Unknown]
  - Stress [Unknown]
  - Allergic sinusitis [Unknown]
  - Mycotic allergy [Unknown]
  - Fine motor skill dysfunction [Unknown]
  - Quality of life decreased [Unknown]
  - Cerebral disorder [Unknown]
  - Tympanic membrane perforation [Unknown]
  - Feeling abnormal [Unknown]
  - Device programming error [Unknown]
  - Sinus pain [Unknown]
  - Depressed mood [Unknown]
  - Infection [Unknown]
  - Inappropriate schedule of product administration [Unknown]
  - Product dose omission issue [Unknown]
  - Product use issue [Unknown]
  - Gastric infection [Unknown]
  - Device difficult to use [Unknown]
  - Weight decreased [Unknown]
  - Gastrooesophageal reflux disease [Unknown]
  - Eating disorder [Unknown]
  - Muscular weakness [Unknown]
  - Phlebitis [Unknown]
  - Vertigo [Recovering/Resolving]
  - Irritability [Unknown]
  - Amnesia [Unknown]
  - Balance disorder [Unknown]
  - Decreased appetite [Unknown]
  - Anxiety [Unknown]
  - Dyspepsia [Unknown]
  - Insomnia [Unknown]
  - Injection site pain [Unknown]
  - Infusion site haemorrhage [Unknown]
  - Abdominal distension [Unknown]
  - Dizziness [Unknown]
  - Blood pressure increased [Unknown]
  - Malaise [Unknown]
  - Tremor [Unknown]
  - Back pain [Unknown]
  - Asthenia [Unknown]
  - Fatigue [Unknown]
  - Nausea [Unknown]
  - Headache [Unknown]
  - Infusion site swelling [Unknown]

NARRATIVE: CASE EVENT DATE: 20190101
